FAERS Safety Report 16723482 (Version 1)
Quarter: 2019Q3

REPORT INFORMATION
  Report Type: Spontaneous
  Country: US (occurrence: US)
  Receive Date: 20190821
  Receipt Date: 20190821
  Transmission Date: 20191005
  Serious: Yes (Hospitalization)
  Sender: FDA-Public Use
  Company Number: US-NAPPMUNDI-USA-2019-0148028

PATIENT
  Sex: Female
  Weight: 72.56 kg

DRUGS (1)
  1. OXYCODONE HYDROCHLORIDE (SIMILAR TO NDA 22-272) [Suspect]
     Active Substance: OXYCODONE HYDROCHLORIDE
     Indication: PAIN MANAGEMENT
     Dosage: 20 MG, PRN
     Route: 048
     Dates: start: 2004

REACTIONS (1)
  - Spinal fusion surgery [Unknown]

NARRATIVE: CASE EVENT DATE: 20190705
